FAERS Safety Report 9888897 (Version 1)
Quarter: 2014Q1

REPORT INFORMATION
  Report Type: Report from Study
  Country: US (occurrence: US)
  Receive Date: 20140211
  Receipt Date: 20140211
  Transmission Date: 20141002
  Serious: Yes (Death)
  Sender: FDA-Public Use
  Company Number: US-DRAFT-US-2013-12167

PATIENT
  Sex: 0

DRUGS (6)
  1. BUSULFEX [Suspect]
     Indication: HAEMATOLOGICAL MALIGNANCY
     Dosage: 180 MG MILLIGRAM(S), DAILY DOSE
     Route: 042
     Dates: start: 20050316, end: 20050319
  2. FLUDARABINE [Suspect]
     Indication: HAEMATOLOGICAL MALIGNANCY
     Dosage: 40 MG MILLIGRAM(S), DAILY DOSE
     Route: 042
     Dates: start: 20050315, end: 20050319
  3. FLUDARABINE [Suspect]
     Indication: LYMPHOMA
  4. ALEMTUZUMAB [Suspect]
     Indication: HAEMATOLOGICAL MALIGNANCY
     Dosage: 40 MG MILLIGRAM(S), DAILY DOSE
     Route: 042
     Dates: start: 20050315, end: 20050319
  5. ALEMTUZUMAB [Suspect]
     Indication: LYMPHOMA
  6. CLONAZEPAM [Suspect]
     Dosage: UNK
     Route: 048

REACTIONS (1)
  - Respiratory failure [Fatal]
